FAERS Safety Report 10375300 (Version 2)
Quarter: 2014Q3

REPORT INFORMATION
  Report Type: Report from Study
  Country: JP (occurrence: JP)
  Receive Date: 20140811
  Receipt Date: 20140821
  Transmission Date: 20150326
  Serious: No
  Sender: FDA-Public Use
  Company Number: JP-TAKEDA-2014TJP010533

PATIENT
  Sex: Male
  Weight: 43.3 kg

DRUGS (11)
  1. PREDNISOLONE. [Concomitant]
     Active Substance: PREDNISOLONE
     Indication: CROHN^S DISEASE
     Dosage: 10 MG, QD
     Route: 048
     Dates: start: 20090427
  2. NEXIUM [Concomitant]
     Active Substance: ESOMEPRAZOLE MAGNESIUM
     Indication: PROPHYLAXIS AGAINST GASTROINTESTINAL ULCER
     Dosage: 20 MG, QD
     Route: 048
     Dates: start: 20121023
  3. IMURAN [Concomitant]
     Active Substance: AZATHIOPRINE
     Indication: CROHN^S DISEASE
     Dosage: 50 MG, BID
     Route: 048
     Dates: start: 20120410
  4. VEDOLIZUMAB [Suspect]
     Active Substance: VEDOLIZUMAB
     Dates: start: 20140717, end: 20140717
  5. HALCION [Concomitant]
     Active Substance: TRIAZOLAM
     Indication: INSOMNIA
     Dosage: 0.125 MG, QD
     Route: 048
     Dates: start: 20090603
  6. VEDOLIZUMAB [Suspect]
     Active Substance: VEDOLIZUMAB
     Indication: CROHN^S DISEASE
     Dosage: 300 MG, UNK
     Route: 042
     Dates: start: 20140703, end: 20140703
  7. PENTASA KYORIN [Concomitant]
     Indication: CROHN^S DISEASE
     Dosage: 1500 MG, BID
     Route: 048
     Dates: start: 20090424
  8. ELENTAL [Concomitant]
     Indication: CROHN^S DISEASE
     Dosage: 80 G, TID
     Route: 048
     Dates: start: 20090410
  9. FERROUS SODIUM CITRATE [Concomitant]
     Indication: ANAEMIA PROPHYLAXIS
     Dosage: 50 MG, BID
     Route: 048
     Dates: start: 20140603
  10. VITAMIN D AND ANALOGUES [Concomitant]
     Indication: OSTEOPOROSIS PROPHYLAXIS
     Dosage: 0.75 ?G, QD
     Route: 048
     Dates: start: 20121218
  11. BIOFERMIN R [Concomitant]
     Active Substance: BACILLUS SUBTILIS\LACTOBACILLUS ACIDOPHILUS\STREPTOCOCCUS FAECAIS
     Indication: CROHN^S DISEASE
     Dosage: 1 G, TID
     Route: 048
     Dates: start: 20090925

REACTIONS (1)
  - No adverse event [None]
